FAERS Safety Report 6456187-2 (Version None)
Quarter: 2009Q4

REPORT INFORMATION
  Report Type: 
  Country: None (occurrence: None)
  Receive Date: 20091125
  Receipt Date: 20091117
  Transmission Date: 20100525
  Serious: Yes (Hospitalization)
  Sender: FDA-Public Use
  Company Number: US-PFIZER INC-2009299825

PATIENT
  Sex: Female

DRUGS (1)
  1. DEPO-PROVERA [Suspect]
     Indication: CONTRACEPTION
     Dosage: UNK
     Dates: start: 20090901

REACTIONS (5)
  - CHEST PAIN [None]
  - DYSPNOEA [None]
  - MENORRHAGIA [None]
  - MIGRAINE [None]
  - NAUSEA [None]
